FAERS Safety Report 8405793-4 (Version None)
Quarter: 2012Q2

REPORT INFORMATION
  Report Type: 
  Country: None (occurrence: None)
  Receive Date: 20120604
  Receipt Date: 20120529
  Transmission Date: 20120825
  Serious: No
  Sender: FDA-Public Use
  Company Number: US-PFIZER INC-2012129656

PATIENT
  Sex: Male

DRUGS (2)
  1. CHANTIX [Suspect]
     Dosage: 0.5MG DAILY
     Route: 048
     Dates: start: 20120101, end: 20120501
  2. CHANTIX [Suspect]
     Dosage: 1 MG, UNK
     Route: 048
     Dates: start: 20120501, end: 20120528

REACTIONS (2)
  - ANXIETY [None]
  - EMOTIONAL DISORDER [None]
